FAERS Safety Report 7197809-0 (Version None)
Quarter: 2010Q4

REPORT INFORMATION
  Report Type: 
  Country: None (occurrence: None)
  Receive Date: 20101214
  Receipt Date: 20101102
  Transmission Date: 20110411
  Serious: Yes (Life-Threatening, Hospitalization, Other)
  Sender: FDA-Public Use
  Company Number: 2010IP000136

PATIENT
  Age: 80 Year
  Sex: Male

DRUGS (5)
  1. XIBROM [Suspect]
     Indication: CATARACT OPERATION
     Dosage: 1 GTT; BID; OPH
     Route: 047
     Dates: start: 20100910, end: 20100911
  2. VIGAMOX [Concomitant]
  3. PRED FORTE [Concomitant]
  4. PREDNISONE [Concomitant]
  5. NEBULIZER [Concomitant]

REACTIONS (1)
  - ANAPHYLACTIC REACTION [None]
